FAERS Safety Report 5217206-4 (Version None)
Quarter: 2007Q1

REPORT INFORMATION
  Report Type: 
  Country: None (occurrence: None)
  Receive Date: 20070119
  Receipt Date: 20070108
  Transmission Date: 20070707
  Serious: Yes (Hospitalization)
  Sender: FDA-Public Use
  Company Number: MEDI-0005276

PATIENT
  Age: 6 Month
  Sex: Male

DRUGS (3)
  1. SYNAGIS [Suspect]
     Dosage: SUBCUTANEOUS
     Route: 058
     Dates: start: 20061115, end: 20061115
  2. ACID FUSIDIC (FUSIDIC ACID) [Suspect]
     Dosage: OPHTHALMIC
     Route: 047
     Dates: start: 20061115, end: 20061115
  3. VITAMIN A [Suspect]
     Dosage: OPHTHALMIC
     Route: 047
     Dates: start: 20061115, end: 20061115

REACTIONS (1)
  - HYDROCEPHALUS [None]
